FAERS Safety Report 5003905-6 (Version None)
Quarter: 2006Q2

REPORT INFORMATION
  Report Type: 
  Country: None (occurrence: None)
  Receive Date: 20060515
  Receipt Date: 20060505
  Transmission Date: 20061013
  Serious: Yes (Other)
  Sender: FDA-Public Use
  Company Number: 2006-05-0274

PATIENT
  Age: 48 Year
  Sex: Female

DRUGS (2)
  1. INTERFERON ALFA INJECTABLE [Suspect]
     Indication: HEPATITIS C
  2. RIBAVIRIN [Suspect]
     Indication: HEPATITIS C

REACTIONS (3)
  - CONDITION AGGRAVATED [None]
  - DERMATOFIBROSARCOMA [None]
  - SKIN LESION [None]
